FAERS Safety Report 6554232-7 (Version None)
Quarter: 2010Q1

REPORT INFORMATION
  Report Type: 
  Country: None (occurrence: None)
  Receive Date: 20100122
  Receipt Date: 20100106
  Transmission Date: 20100710
  Serious: Yes (Hospitalization)
  Sender: FDA-Public Use
  Company Number: 2010AC000035

PATIENT
  Age: 80 Year
  Sex: Female

DRUGS (27)
  1. DIGOXIN [Suspect]
     Dosage: 0.25 MG;QD;PO
     Route: 048
     Dates: start: 19990201, end: 20080101
  2. PHENYTOIN [Concomitant]
  3. EFFEXOR [Concomitant]
  4. DETROL LA [Concomitant]
  5. HEPARIN [Concomitant]
  6. CARDIZEM [Concomitant]
  7. FOLATE [Concomitant]
  8. ASPIRIN [Concomitant]
  9. PRILOSEC [Concomitant]
  10. LISINOPRIL [Concomitant]
  11. LOPRESSOR [Concomitant]
  12. CLONIDINE [Concomitant]
  13. POTASSIUM CHLORIDE [Concomitant]
  14. MAGNESIUM OXIDE [Concomitant]
  15. MINITRAN [Concomitant]
  16. BUSPAR [Concomitant]
  17. OXYBUTYNIN [Concomitant]
  18. NITRO-DUR [Concomitant]
  19. FOLIC ACID [Concomitant]
  20. CELEBREX [Concomitant]
  21. PULMICORT [Concomitant]
  22. INDOMETHACIN [Concomitant]
  23. CEPHALEXIN [Concomitant]
  24. TAZIA [Concomitant]
  25. GENTAMICIN [Concomitant]
  26. NITRO TD [Concomitant]
  27. NITROGLYN 2% OINTMENT [Concomitant]

REACTIONS (5)
  - ECONOMIC PROBLEM [None]
  - EMOTIONAL DISORDER [None]
  - INJURY [None]
  - INTESTINAL ISCHAEMIA [None]
  - PAIN [None]
